FAERS Safety Report 17911799 (Version 5)
Quarter: 2020Q4

REPORT INFORMATION
  Report Type: Spontaneous
  Country: US (occurrence: US)
  Receive Date: 20200618
  Receipt Date: 20201110
  Transmission Date: 20210113
  Serious: Yes (Other)
  Sender: FDA-Public Use
  Company Number: US-PFIZER INC-2019393723

PATIENT
  Age: 89 Year
  Sex: Male

DRUGS (1)
  1. LYRICA [Suspect]
     Active Substance: PREGABALIN
     Dosage: UNK UNK, 1X/DAY

REACTIONS (9)
  - Diabetes mellitus [Unknown]
  - Product prescribing issue [Unknown]
  - Sciatica [Unknown]
  - Intentional product use issue [Unknown]
  - Feeling hot [Unknown]
  - Nerve degeneration [Unknown]
  - Insomnia [Unknown]
  - Pain in extremity [Unknown]
  - Hypoacusis [Unknown]

NARRATIVE: CASE EVENT DATE: 2014
